FAERS Safety Report 4976667-6 (Version None)
Quarter: 2006Q2

REPORT INFORMATION
  Report Type: 
  Country: None (occurrence: None)
  Receive Date: 20060419
  Receipt Date: 20050304
  Transmission Date: 20061013
  Serious: Yes (Hospitalization)
  Sender: FDA-Public Use
  Company Number: US-MERCK-0503USA01006

PATIENT
  Age: 70 Year
  Sex: Male
  Weight: 83 kg

DRUGS (4)
  1. VIOXX [Suspect]
     Indication: ARTHRITIS
     Route: 048
     Dates: start: 19990101, end: 20021201
  2. VIOXX [Suspect]
     Route: 048
     Dates: start: 19990101, end: 20021201
  3. VIOXX [Suspect]
     Route: 048
     Dates: start: 19990101, end: 20021201
  4. TOPROL-XL [Concomitant]
     Route: 065

REACTIONS (11)
  - CARDIAC FAILURE CONGESTIVE [None]
  - CAROTID ARTERY OCCLUSION [None]
  - CAROTID ARTERY STENOSIS [None]
  - CAROTID BRUIT [None]
  - CEREBROVASCULAR DISORDER [None]
  - CHEST PAIN [None]
  - CORONARY ARTERY STENOSIS [None]
  - HYPERLIPIDAEMIA [None]
  - LIPIDS ABNORMAL [None]
  - RENAL IMPAIRMENT [None]
  - TRANSIENT ISCHAEMIC ATTACK [None]
